FAERS Safety Report 4299989-3 (Version None)
Quarter: 2004Q1

REPORT INFORMATION
  Report Type: 
  Country: None (occurrence: None)
  Receive Date: 20040218
  Receipt Date: 20040209
  Transmission Date: 20041129
  Serious: Yes (Hospitalization)
  Sender: FDA-Public Use
  Company Number: STA-AE-04-MTX-051

PATIENT
  Sex: Male

DRUGS (3)
  1. LANTAREL (METHOTREXATE, UNSPEC) [Suspect]
     Dosage: 25 MG
  2. LANTAREL (METHOTREXATE, UNSPEC) [Suspect]
     Dosage: 20 MG
  3. ARAVA [Concomitant]

REACTIONS (1)
  - PANCREATIC CARCINOMA [None]
